FAERS Safety Report 7238448-2 (Version None)
Quarter: 2011Q1

REPORT INFORMATION
  Report Type: 
  Country: None (occurrence: None)
  Receive Date: 20110121
  Receipt Date: 20110113
  Transmission Date: 20110831
  Serious: Yes (Life-Threatening)
  Sender: FDA-Public Use
  Company Number: AU-MERCK-1101USA01438

PATIENT
  Age: 70 Year
  Sex: Female

DRUGS (5)
  1. ZOCOR [Suspect]
     Route: 042
  2. GLICLAZIDE [Concomitant]
     Route: 065
  3. ACETAMINOPHEN [Suspect]
     Route: 065
  4. METFORMIN HYDROCHLORIDE [Concomitant]
     Route: 065
  5. CARBAMAZEPINE [Suspect]
     Route: 065
     Dates: start: 20100809, end: 20100827

REACTIONS (3)
  - LIVER INJURY [None]
  - PYREXIA [None]
  - RASH [None]
